FAERS Safety Report 14407489 (Version 3)
Quarter: 2018Q1

REPORT INFORMATION
  Report Type: Spontaneous
  Country: US (occurrence: US)
  Receive Date: 20180118
  Receipt Date: 20180320
  Transmission Date: 20180509
  Serious: Yes (Other)
  Sender: FDA-Public Use
  Company Number: US-BAUSCH-BL-2017-030297

PATIENT
  Age: 78 Year
  Sex: Female
  Weight: 53.57 kg

DRUGS (3)
  1. UCERIS [Suspect]
     Active Substance: BUDESONIDE
     Indication: COLITIS ULCERATIVE
     Dosage: EXTENDED RELEASE TABLET, ONE 9MG TABLET DAILY
     Route: 048
  2. UCERIS [Suspect]
     Active Substance: BUDESONIDE
     Dosage: RE-STARTED; EXTENDED RELEASE TABLET, ONE 9MG TABLET DAILY
     Route: 048
  3. IMODIUM [Suspect]
     Active Substance: LOPERAMIDE HYDROCHLORIDE
     Indication: DIARRHOEA
     Dosage: ONCE A DAY
     Route: 065

REACTIONS (7)
  - Fracture [Recovered/Resolved]
  - Fall [Recovered/Resolved]
  - Gastrointestinal motility disorder [Recovered/Resolved]
  - Diarrhoea [Recovered/Resolved]
  - Drug dose omission [Unknown]
  - Accident [Recovered/Resolved]
  - Confusional state [Recovered/Resolved]

NARRATIVE: CASE EVENT DATE: 20171025
